FAERS Safety Report 22523779 (Version 1)
Quarter: 2023Q2

REPORT INFORMATION
  Report Type: Spontaneous
  Country: US (occurrence: None)
  Receive Date: 20230606
  Receipt Date: 20230606
  Transmission Date: 20230721
  Serious: No
  Sender: FDA-Public Use
  Company Number: US-Hikma Pharmaceuticals USA Inc.-US-H14001-22-01972

PATIENT
  Age: 72 Year
  Sex: Male
  Weight: 84.35 kg

DRUGS (1)
  1. FLUTICASONE [Suspect]
     Active Substance: FLUTICASONE
     Indication: Product used for unknown indication
     Dosage: 100 MCG IN EACH NOSTRIL
     Route: 045
     Dates: start: 202206

REACTIONS (1)
  - Nasal polyps [Not Recovered/Not Resolved]

NARRATIVE: CASE EVENT DATE: 20220723
